FAERS Safety Report 15436808 (Version 9)
Quarter: 2019Q1

REPORT INFORMATION
  Report Type: Spontaneous
  Country: US (occurrence: US)
  Receive Date: 20180927
  Receipt Date: 20190222
  Transmission Date: 20190417
  Serious: Yes (Hospitalization)
  Sender: FDA-Public Use
  Company Number: US-ACTELION-A-US2018-179221

PATIENT
  Age: 9 Month
  Sex: Male

DRUGS (5)
  1. REMODULIN [Concomitant]
     Active Substance: TREPROSTINIL
     Dosage: 42 NG/KG, PER MIN
     Route: 058
     Dates: start: 201808
  2. DIURIL [Concomitant]
     Active Substance: CHLOROTHIAZIDE
     Dosage: 2.75 ML, BID
     Route: 065
  3. TRACLEER [Suspect]
     Active Substance: BOSENTAN
     Indication: PULMONARY HYPERTENSION
     Dosage: 18 MG, BID
     Route: 048
     Dates: start: 20180831
  4. REVATIO [Concomitant]
     Active Substance: SILDENAFIL CITRATE
     Dosage: 11 MG, Q6HRS
     Dates: start: 201801
  5. TRACLEER [Suspect]
     Active Substance: BOSENTAN
     Dosage: 32 MG, BID
     Route: 048
     Dates: start: 20180906

REACTIONS (5)
  - Oxygen saturation decreased [Unknown]
  - Hospitalisation [Unknown]
  - Dyspnoea [Unknown]
  - Device infusion issue [Not Recovered/Not Resolved]
  - Vomiting [Unknown]

NARRATIVE: CASE EVENT DATE: 20180917
